FAERS Safety Report 4359767-3 (Version None)
Quarter: 2004Q2

REPORT INFORMATION
  Report Type: 
  Country: None (occurrence: None)
  Receive Date: 20040518
  Receipt Date: 20040511
  Transmission Date: 20050107
  Serious: Yes (Death, Hospitalization)
  Sender: FDA-Public Use
  Company Number: JP-JNJFOC-20040502291

PATIENT
  Age: 71 Year
  Sex: Female

DRUGS (5)
  1. OFLOXACIN [Suspect]
     Indication: DRUG USE FOR UNKNOWN INDICATION
     Route: 049
  2. OFLOXACIN [Suspect]
     Route: 042
  3. LASIX [Suspect]
     Indication: DRUG USE FOR UNKNOWN INDICATION
  4. CORDARONE [Suspect]
     Indication: DRUG USE FOR UNKNOWN INDICATION
     Route: 049
  5. DIGOXIN [Suspect]
     Indication: DRUG USE FOR UNKNOWN INDICATION

REACTIONS (5)
  - ALANINE AMINOTRANSFERASE INCREASED [None]
  - ASPARTATE AMINOTRANSFERASE INCREASED [None]
  - CARDIAC CIRRHOSIS [None]
  - RECTAL CANCER [None]
  - THROMBOCYTOPENIA [None]
